FAERS Safety Report 5574129-9 (Version None)
Quarter: 2007Q4

REPORT INFORMATION
  Report Type: 
  Country: None (occurrence: None)
  Receive Date: 20071221
  Receipt Date: 20071127
  Transmission Date: 20080405
  Serious: Yes (Life-Threatening, Hospitalization)
  Sender: FDA-Public Use
  Company Number: 64982

PATIENT
  Age: 56 Year
  Sex: Male

DRUGS (2)
  1. ASPIRIN [Suspect]
     Indication: ABSCESS
     Dosage: 300MG/ORAL
     Route: 048
     Dates: start: 20070909, end: 20070910
  2. ASPIRIN [Suspect]
     Indication: PAIN IN EXTREMITY
     Dosage: 300MG/ORAL
     Route: 048
     Dates: start: 20070909, end: 20070910

REACTIONS (2)
  - DUODENAL ULCER [None]
  - UPPER GASTROINTESTINAL HAEMORRHAGE [None]
